FAERS Safety Report 22383088 (Version 1)
Quarter: 2023Q2

REPORT INFORMATION
  Report Type: Spontaneous
  Country: CN (occurrence: CN)
  Receive Date: 20230530
  Receipt Date: 20230530
  Transmission Date: 20230722
  Serious: Yes (Other)
  Sender: FDA-Public Use
  Company Number: CN-PFIZER INC-PV202300093935

PATIENT
  Age: 52 Year
  Sex: Male
  Weight: 81 kg

DRUGS (2)
  1. TYGACIL [Suspect]
     Active Substance: TIGECYCLINE
     Indication: Alpha 1 foetoprotein abnormal
     Dosage: 50 MG, 2X/DAY
     Route: 041
     Dates: start: 20230509, end: 20230515
  2. TYGACIL [Suspect]
     Active Substance: TIGECYCLINE
     Indication: Anti-infective therapy

REACTIONS (2)
  - Blood bilirubin increased [Unknown]
  - Incorrect dose administered [Unknown]

NARRATIVE: CASE EVENT DATE: 20230509
